FAERS Safety Report 7625797-9 (Version None)
Quarter: 2011Q3

REPORT INFORMATION
  Report Type: 
  Country: None (occurrence: None)
  Receive Date: 20110721
  Receipt Date: 20110715
  Transmission Date: 20111222
  Serious: Yes (Death, Hospitalization)
  Sender: FDA-Public Use
  Company Number: PHHY2011DE64022

PATIENT
  Sex: Female

DRUGS (1)
  1. ASPIRIN [Suspect]
     Dosage: UNK

REACTIONS (14)
  - HAEMORRHAGE [None]
  - HAEMOGLOBIN DECREASED [None]
  - GASTROINTESTINAL DISORDER [None]
  - DRUG ABUSE [None]
  - RECTAL HAEMORRHAGE [None]
  - ANASTOMOTIC ULCER [None]
  - GASTROINTESTINAL HAEMORRHAGE [None]
  - MUCOSAL EROSION [None]
  - JEJUNAL STENOSIS [None]
  - HAEMATOCHEZIA [None]
  - THROMBOSIS [None]
  - CARDIAC FAILURE [None]
  - GASTROINTESTINAL ULCER HAEMORRHAGE [None]
  - GASTROINTESTINAL NECROSIS [None]
